FAERS Safety Report 14389742 (Version 1)
Quarter: 2018Q1

REPORT INFORMATION
  Report Type: Spontaneous
  Country: US (occurrence: US)
  Receive Date: 20180115
  Receipt Date: 20180115
  Transmission Date: 20180509
  Serious: Yes (Other)
  Sender: FDA-Public Use
  Company Number: US-TARO-2018TAR00013

PATIENT
  Sex: Female
  Weight: 68.27 kg

DRUGS (6)
  1. CARBAMAZEPINE TABLETS CHEWABLE USP 100MG [Suspect]
     Active Substance: CARBAMAZEPINE
     Dosage: 50 MG, 2X/DAY
     Route: 048
     Dates: end: 201712
  2. CARBAMAZEPINE TABLETS CHEWABLE USP 100MG [Suspect]
     Active Substance: CARBAMAZEPINE
     Dosage: 50 MG, 2X/DAY
     Route: 048
     Dates: start: 201712
  3. CARBAMAZEPINE TABLETS CHEWABLE USP 100MG [Suspect]
     Active Substance: CARBAMAZEPINE
     Dosage: 50 MG, 1X/DAY IN THE MORNING
     Route: 048
     Dates: start: 201712, end: 201712
  4. SYNTHROID [Concomitant]
     Active Substance: LEVOTHYROXINE SODIUM
  5. CARBAMAZEPINE TABLETS CHEWABLE USP 100MG [Suspect]
     Active Substance: CARBAMAZEPINE
     Indication: PAIN IN JAW
     Dosage: 100 MG, 2X/DAY
     Route: 048
     Dates: start: 2010
  6. MULTIVITAMIN [Concomitant]
     Active Substance: VITAMINS
     Dosage: UNK, 1X/DAY

REACTIONS (5)
  - Dizziness [Not Recovered/Not Resolved]
  - Gait disturbance [Not Recovered/Not Resolved]
  - Hallucination, auditory [Not Recovered/Not Resolved]
  - Limb injury [Unknown]
  - Balance disorder [Not Recovered/Not Resolved]
